FAERS Safety Report 12638539 (Version 1)
Quarter: 2016Q3

REPORT INFORMATION
  Report Type: Spontaneous
  Country: CA (occurrence: CA)
  Receive Date: 20160809
  Receipt Date: 20160809
  Transmission Date: 20161109
  Serious: Yes (Hospitalization, Other)
  Sender: FDA-Public Use
  Company Number: CA-B.I. PHARMACEUTICALS,INC./RIDGEFIELD-2016-BI-51051CN

PATIENT
  Age: 82 Year
  Sex: Female

DRUGS (1)
  1. PRADAXA [Suspect]
     Active Substance: DABIGATRAN ETEXILATE MESYLATE
     Indication: ATRIAL FIBRILLATION
     Route: 065
     Dates: end: 20160630

REACTIONS (7)
  - Melaena [Recovered/Resolved]
  - Colon cancer [Not Recovered/Not Resolved]
  - Cardiac failure congestive [Recovered/Resolved]
  - Acute myocardial infarction [Recovered/Resolved]
  - Asthenia [Recovered/Resolved]
  - Haemoglobin decreased [Recovered/Resolved]
  - Abdominal pain [Recovered/Resolved]

NARRATIVE: CASE EVENT DATE: 2016
